FAERS Safety Report 9277703 (Version 1)
Quarter: 2013Q2

REPORT INFORMATION
  Report Type: Spontaneous
  Country: US (occurrence: None)
  Receive Date: 20130503
  Receipt Date: 20130503
  Transmission Date: 20140414
  Serious: Yes (Hospitalization, Other)
  Sender: FDA-Public Use
  Company Number: None

PATIENT
  Age: 88 Year
  Sex: Female
  Weight: 45.36 kg

DRUGS (1)
  1. ARICEPT [Suspect]
     Indication: AMNESIA
     Route: 048
     Dates: start: 20121212, end: 20121217

REACTIONS (4)
  - Diarrhoea [None]
  - Vomiting [None]
  - Oesophageal rupture [None]
  - Faeces discoloured [None]
